FAERS Safety Report 9377382 (Version 1)
Quarter: 2013Q3

REPORT INFORMATION
  Report Type: Spontaneous
  Country: JP (occurrence: JP)
  Receive Date: 20130701
  Receipt Date: 20130701
  Transmission Date: 20140515
  Serious: Yes (Other)
  Sender: FDA-Public Use
  Company Number: JP-PFIZER INC-2013190264

PATIENT
  Age: 7 Year
  Sex: Male

DRUGS (3)
  1. KETAMINE HCL [Suspect]
     Indication: ANAESTHESIA
     Dosage: 1 TO 2 ML
     Route: 042
  2. LIDOCAINE HCL [Suspect]
     Indication: ANAESTHESIA
     Dosage: 10 ML, UNK
     Route: 042
  3. ROPIVACAINE [Suspect]
     Indication: ANAESTHESIA
     Dosage: 10 ML, UNK
     Route: 042

REACTIONS (4)
  - Toxicity to various agents [Unknown]
  - Grand mal convulsion [Unknown]
  - Muscle rigidity [Unknown]
  - Restlessness [Unknown]
